FAERS Safety Report 20335291 (Version 1)
Quarter: 2022Q1

REPORT INFORMATION
  Report Type: Spontaneous
  Country: US (occurrence: None)
  Receive Date: 20220113
  Receipt Date: 20220113
  Transmission Date: 20220423
  Serious: Yes (Hospitalization)
  Sender: FDA-Public Use
  Company Number: None

PATIENT
  Age: 54 Year
  Sex: Female

DRUGS (15)
  1. CASIRIVIMAB\IMDEVIMAB [Suspect]
     Active Substance: CASIRIVIMAB\IMDEVIMAB
     Indication: COVID-19
     Dosage: FREQUENCY : ONCE;?
     Route: 058
     Dates: start: 20220107, end: 20220107
  2. XANAX [Concomitant]
     Active Substance: ALPRAZOLAM
  3. atorvastatin (LIPITOR) [Concomitant]
  4. bacillus coagulans-inulin [Concomitant]
  5. bisoprolol (ZEBETA) [Concomitant]
  6. cholecalciferol (Vitamin D3) [Concomitant]
  7. cyanocobalamin (VITAMIN B-12) [Concomitant]
  8. glimepiride (AMARYL) [Concomitant]
  9. hyoscyamine (LEVSIN) [Concomitant]
  10. multivitamin with minerals (HAIR,SKIN AND NAILS ORAL) [Concomitant]
  11. pantoprazole (PROTONIX) [Concomitant]
  12. pumpkin seed extract/soy germ (AZO BLADDER CONTROL ORAL) [Concomitant]
  13. QUERCETIN DIHYDRATE, BULK, MISC [Concomitant]
  14. SITagliptin (JANUVIA) [Concomitant]
  15. traMAdoL (Ultram) [Concomitant]

REACTIONS (7)
  - Cough [None]
  - Oxygen saturation decreased [None]
  - Pulmonary congestion [None]
  - Condition aggravated [None]
  - Transaminases increased [None]
  - Fibrin D dimer increased [None]
  - Refusal of treatment by patient [None]

NARRATIVE: CASE EVENT DATE: 20220108
